FAERS Safety Report 7558040-X (Version None)
Quarter: 2011Q2

REPORT INFORMATION
  Report Type: 
  Country: None (occurrence: None)
  Receive Date: 20110620
  Receipt Date: 20110610
  Transmission Date: 20111010
  Serious: Yes (Other)
  Sender: FDA-Public Use
  Company Number: PHHY2011GB51269

PATIENT

DRUGS (5)
  1. DEXAMETHASONE [Suspect]
     Dosage: 8 MG, UNK
  2. SEVOFLURANE [Concomitant]
  3. FENTANYL-100 [Concomitant]
     Route: 042
  4. ONDANSETRON [Suspect]
     Indication: PROPHYLAXIS
     Dosage: 4 MG, UNK
  5. PROPOFOL [Concomitant]
     Route: 042

REACTIONS (4)
  - PHOTOPHOBIA [None]
  - MIGRAINE [None]
  - HEADACHE [None]
  - NAUSEA [None]
